FAERS Safety Report 15800458 (Version 1)
Quarter: 2019Q1

REPORT INFORMATION
  Report Type: Report from Study
  Country: US (occurrence: US)
  Receive Date: 20190108
  Receipt Date: 20190108
  Transmission Date: 20190417
  Serious: Yes (Hospitalization, Other)
  Sender: FDA-Public Use
  Company Number: US-GILEAD-2019-0383459

PATIENT
  Age: 28 Year
  Sex: Female

DRUGS (2)
  1. AZTREONAM LYSINE [Suspect]
     Active Substance: AZTREONAM LYSINE
     Indication: CYSTIC FIBROSIS
     Dosage: 75 MG RECONSTITUTE WITH 1ML DILUENT AND NEBULIZE 3 TIMES DAILY FOR 28 DAYS ON AND 28 DAYS OFF
     Route: 055
     Dates: start: 201801
  2. PULMOZYME [Suspect]
     Active Substance: DORNASE ALFA
     Indication: CYSTIC FIBROSIS
     Dosage: 1 MG, BID
     Route: 065

REACTIONS (2)
  - Pneumothorax [Recovering/Resolving]
  - Fungal infection [Recovering/Resolving]

NARRATIVE: CASE EVENT DATE: 201807
